FAERS Safety Report 5943532-7 (Version None)
Quarter: 2008Q4

REPORT INFORMATION
  Report Type: 
  Country: None (occurrence: None)
  Receive Date: 20081106
  Receipt Date: 20081030
  Transmission Date: 20090506
  Serious: Yes (Other)
  Sender: FDA-Public Use
  Company Number: JP-SANOFI-SYNTHELABO-A01200813743

PATIENT
  Sex: Male
  Weight: 70 kg

DRUGS (13)
  1. NOVO-HEPARIN [Concomitant]
     Dosage: UNK
  2. DEXART [Concomitant]
     Dosage: UNK
  3. KYTRIL [Concomitant]
     Dosage: UNK
  4. HARNAL [Concomitant]
     Dosage: UNK
  5. AMOBAN [Concomitant]
     Dosage: UNK
  6. ALSAZULENE [Concomitant]
     Dosage: UNK
  7. MAGNESIUM OXIDE [Concomitant]
     Dosage: UNK
  8. AMLODIN [Concomitant]
     Dosage: UNK
  9. ISOVORIN [Concomitant]
     Dosage: UNK
     Route: 041
  10. FLUOROURACIL [Concomitant]
     Dosage: UNK
     Route: 042
  11. AVASTIN [Suspect]
     Route: 041
     Dates: start: 20080528, end: 20080528
  12. ELPLAT [Suspect]
     Indication: RECTAL CANCER METASTATIC
     Route: 041
     Dates: start: 20080528, end: 20080528
  13. CARBAZOCHROME [Concomitant]
     Dosage: UNK

REACTIONS (2)
  - NEPHROSCLEROSIS [None]
  - NEPHROTIC SYNDROME [None]
